FAERS Safety Report 5934399-1 (Version None)
Quarter: 2008Q4

REPORT INFORMATION
  Report Type: 
  Country: None (occurrence: None)
  Receive Date: 20081029
  Receipt Date: 20081024
  Transmission Date: 20090506
  Serious: Yes (Life-Threatening)
  Sender: FDA-Public Use
  Company Number: PHHY2008JP25996

PATIENT
  Age: 86 Year
  Sex: Female

DRUGS (4)
  1. VOLTAREN [Suspect]
     Indication: PYREXIA
     Dosage: 12.5 MG, UNK
     Route: 054
     Dates: start: 20081021, end: 20081021
  2. NORVASC [Concomitant]
     Dosage: 7.5 MG
     Route: 048
  3. MUCOSTA [Concomitant]
     Dosage: 300 MG
     Route: 048
  4. ANPLAG [Concomitant]
     Dosage: 300 MG
     Route: 048

REACTIONS (3)
  - DYSPNOEA [None]
  - ENDOTRACHEAL INTUBATION [None]
  - PULMONARY HAEMORRHAGE [None]
